FAERS Safety Report 6760803-5 (Version None)
Quarter: 2010Q2

REPORT INFORMATION
  Report Type: 
  Country: None (occurrence: None)
  Receive Date: 20100607
  Receipt Date: 20100607
  Transmission Date: 20101027
  Serious: Yes (Other)
  Sender: FDA-Public Use
  Company Number: None

PATIENT
  Age: 45 Year
  Sex: Female
  Weight: 79.3795 kg

DRUGS (2)
  1. CLONAZEPAM [Suspect]
     Indication: ANXIETY
     Dosage: 1 TAB TWICE A DAY PO
     Route: 048
     Dates: start: 20100201, end: 20100601
  2. CLONAZEPAM [Suspect]
     Indication: PANIC DISORDER
     Dosage: 1 TAB TWICE A DAY PO
     Route: 048
     Dates: start: 20100201, end: 20100601

REACTIONS (1)
  - ALOPECIA [None]
